FAERS Safety Report 11627990 (Version 1)
Quarter: 2015Q4

REPORT INFORMATION
  Report Type: Spontaneous
  Country: US (occurrence: US)
  Receive Date: 20151014
  Receipt Date: 20151014
  Transmission Date: 20160304
  Serious: No
  Sender: FDA-Public Use
  Company Number: US-ASTRAZENECA-2015SE96242

PATIENT
  Sex: Male
  Weight: 94.3 kg

DRUGS (3)
  1. GLIMEPIRIDE. [Concomitant]
     Active Substance: GLIMEPIRIDE
     Indication: DIABETES MELLITUS
  2. BYDUREON [Suspect]
     Active Substance: EXENATIDE
     Indication: TYPE 2 DIABETES MELLITUS
     Route: 058
  3. METFORMIN [Concomitant]
     Active Substance: METFORMIN HYDROCHLORIDE
     Dosage: DECREASED FROM 1000 MG BID TO 500 MG BID.

REACTIONS (7)
  - Injection site pain [Unknown]
  - Intentional product misuse [Unknown]
  - Injection site mass [Unknown]
  - Blood glucose decreased [Unknown]
  - Nervousness [Unknown]
  - Product quality issue [Unknown]
  - Sleep disorder due to general medical condition, insomnia type [Unknown]
